FAERS Safety Report 4307762-2 (Version None)
Quarter: 2004Q1

REPORT INFORMATION
  Report Type: 
  Country: None (occurrence: None)
  Receive Date: 20040225
  Receipt Date: 20030212
  Transmission Date: 20041129
  Serious: Yes (Hospitalization)
  Sender: FDA-Public Use
  Company Number: WAES 0302USA01359

PATIENT
  Age: 66 Year
  Sex: Female
  Weight: 105.2345 kg

DRUGS (8)
  1. ZOCOR [Suspect]
     Indication: BLOOD CHOLESTEROL INCREASED
     Dosage: 10 MG/DAILY/PO
     Route: 048
  2. VERAPAMIL [Suspect]
     Dosage: 240 MG/DAILY
  3. DIOVAN [Concomitant]
  4. HYDRODIURIL [Concomitant]
  5. PROSCAR [Concomitant]
  6. ASPIRIN [Concomitant]
  7. IBUPROFEN [Concomitant]
  8. TERAZOSIN HYDROCHLORIDE [Concomitant]

REACTIONS (1)
  - MYALGIA [None]
